FAERS Safety Report 5177716-5 (Version None)
Quarter: 2006Q4

REPORT INFORMATION
  Report Type: 
  Country: None (occurrence: None)
  Receive Date: 20061207
  Receipt Date: 20061127
  Transmission Date: 20070319
  Serious: Yes (Hospitalization, Other)
  Sender: FDA-Public Use
  Company Number: 2006145694

PATIENT
  Age: 31 Year
  Sex: Female
  Weight: 52.1637 kg

DRUGS (9)
  1. XANAX [Suspect]
     Dates: end: 20060201
  2. NEURONTIN [Suspect]
     Dosage: 2400 MG
     Dates: start: 20040101
  3. GABITRIL [Suspect]
     Indication: PSYCHOGENIC PAIN DISORDER
     Dosage: ORAL
     Route: 048
     Dates: start: 20031101, end: 20040101
  4. GABITRIL [Suspect]
     Indication: TEMPORAL LOBE EPILEPSY
     Dosage: ORAL
     Route: 048
     Dates: start: 20031101, end: 20040101
  5. ADDERALL 10 [Suspect]
     Dosage: 60 MG (30MG, 2 IN 1 D), ORAL
     Route: 048
     Dates: start: 20030101
  6. LEXAPRO [Suspect]
     Dosage: 60 MG (30 MG, 2 IN 1 D)
     Dates: start: 20031101
  7. SYNTHROID [Concomitant]
  8. KEPPRA [Concomitant]
  9. REMERON [Concomitant]

REACTIONS (45)
  - ACTIVITIES OF DAILY LIVING IMPAIRED [None]
  - AGGRESSION [None]
  - AGITATION [None]
  - ALCOHOL USE [None]
  - ANTEROGRADE AMNESIA [None]
  - ANXIETY [None]
  - BLEPHAROSPASM [None]
  - BURNING SENSATION [None]
  - COGNITIVE DISORDER [None]
  - COMPULSIONS [None]
  - CONFUSIONAL STATE [None]
  - CONVULSION [None]
  - DELUSION [None]
  - DISTURBANCE IN ATTENTION [None]
  - DIZZINESS [None]
  - DRUG DEPENDENCE [None]
  - DRUG INEFFECTIVE [None]
  - DRUG INTERACTION [None]
  - DRUG SCREEN POSITIVE [None]
  - DRUG TOXICITY [None]
  - DYSARTHRIA [None]
  - ELECTROENCEPHALOGRAM ABNORMAL [None]
  - EXCESSIVE EYE BLINKING [None]
  - FALL [None]
  - FEAR [None]
  - FLASHBACK [None]
  - HALLUCINATION [None]
  - INCORRECT DOSE ADMINISTERED [None]
  - INSOMNIA [None]
  - IRRITABILITY [None]
  - LOSS OF CONSCIOUSNESS [None]
  - MAJOR DEPRESSION [None]
  - MULTIPLE DRUG OVERDOSE [None]
  - NIGHTMARE [None]
  - PARANOIA [None]
  - POST-TRAUMATIC STRESS DISORDER [None]
  - PSYCHOTIC DISORDER [None]
  - REFUSAL OF TREATMENT BY PATIENT [None]
  - RETROGRADE AMNESIA [None]
  - SCAR [None]
  - SELF-MEDICATION [None]
  - SENSORY DISTURBANCE [None]
  - SPEECH DISORDER [None]
  - SUICIDAL IDEATION [None]
  - THINKING ABNORMAL [None]
